FAERS Safety Report 25257380 (Version 3)
Quarter: 2025Q2

REPORT INFORMATION
  Report Type: Report from Study
  Country: US (occurrence: US)
  Receive Date: 20250430
  Receipt Date: 20250613
  Transmission Date: 20250717
  Serious: No
  Sender: JOHNSON AND JOHNSON
  Company Number: US-JNJFOC-20250389532

PATIENT
  Age: 81 Year
  Sex: Female

DRUGS (1)
  1. GUSELKUMAB [Suspect]
     Active Substance: GUSELKUMAB
     Indication: Psoriasis
     Route: 058

REACTIONS (6)
  - Device issue [Unknown]
  - Product dose omission issue [Unknown]
  - Accidental exposure to product [Unknown]
  - Needle issue [Unknown]
  - Psoriasis [Unknown]
  - Pain [Unknown]

NARRATIVE: CASE EVENT DATE: 20250207
